FAERS Safety Report 22353135 (Version 1)
Quarter: 2023Q2

REPORT INFORMATION
  Report Type: Spontaneous
  Country: ES (occurrence: ES)
  Receive Date: 20230523
  Receipt Date: 20230523
  Transmission Date: 20230722
  Serious: Yes (Other)
  Sender: FDA-Public Use
  Company Number: ES-SA-SAC20230522000040

PATIENT
  Age: 33 Year
  Sex: Male

DRUGS (9)
  1. DUPIXENT [Suspect]
     Active Substance: DUPILUMAB
     Indication: Eosinophilic oesophagitis
     Dosage: 1 DF, QOW
     Route: 065
     Dates: start: 20221115
  2. LEXXEMA [Concomitant]
  3. BUDESONIDE [Concomitant]
     Active Substance: BUDESONIDE
     Dosage: 2MG
  4. BETAMETHASONE DIPROPIONATE [Concomitant]
     Active Substance: BETAMETHASONE DIPROPIONATE
  5. ENSTILAR [Concomitant]
     Active Substance: BETAMETHASONE DIPROPIONATE\CALCIPOTRIENE HYDRATE
     Dosage: ONCE A DAY AT NIGHT
  6. THIAMINE [Concomitant]
     Active Substance: THIAMINE
  7. ELDEMOX [Concomitant]
     Dosage: EDEMOX 250 MG AT THE MOMENT ONE CP PER DAY IN THE MORNIN
  8. BIODRAMINA [Concomitant]
  9. SULPIRIDE [Concomitant]
     Active Substance: SULPIRIDE

REACTIONS (23)
  - Paralysis [Unknown]
  - Condition aggravated [Unknown]
  - Neuropathy peripheral [Unknown]
  - Hemiparesis [Unknown]
  - Condition aggravated [Unknown]
  - Influenza like illness [Unknown]
  - Asthenia [Unknown]
  - Pyrexia [Unknown]
  - Eczema [Unknown]
  - Skin lesion [Recovering/Resolving]
  - Pruritus [Unknown]
  - Seborrhoeic dermatitis [Unknown]
  - Psoriasis [Unknown]
  - Malaise [Unknown]
  - Sleep deficit [Unknown]
  - Fatigue [Unknown]
  - Pain [Unknown]
  - Mood swings [Unknown]
  - Somnolence [Unknown]
  - Vomiting [Unknown]
  - Vertigo [Unknown]
  - Inappropriate schedule of product administration [Unknown]
  - Drug ineffective [Unknown]

NARRATIVE: CASE EVENT DATE: 20221101
